FAERS Safety Report 7238209-4 (Version None)
Quarter: 2011Q1

REPORT INFORMATION
  Report Type: 
  Country: None (occurrence: None)
  Receive Date: 20110121
  Receipt Date: 20110118
  Transmission Date: 20110831
  Serious: No
  Sender: FDA-Public Use
  Company Number: US-PFIZER INC-2011003262

PATIENT
  Sex: Male
  Weight: 49.887 kg

DRUGS (2)
  1. ZOLOFT [Suspect]
     Indication: OBSESSIVE-COMPULSIVE DISORDER
     Dosage: 50 MG, 1X/DAY
     Route: 048
  2. VALIUM [Concomitant]
     Indication: RESTLESSNESS
     Dosage: 5 MG, UNK

REACTIONS (2)
  - DYSGEUSIA [None]
  - SOMNOLENCE [None]
